FAERS Safety Report 4968685-9 (Version None)
Quarter: 2006Q2

REPORT INFORMATION
  Report Type: 
  Country: None (occurrence: None)
  Receive Date: 20060411
  Receipt Date: 20060330
  Transmission Date: 20061013
  Serious: Yes (Other)
  Sender: FDA-Public Use
  Company Number: PHMT2006CA00994

PATIENT
  Age: 66 Year
  Sex: Male

DRUGS (1)
  1. DESFERAL [Suspect]
     Indication: THALASSAEMIA BETA

REACTIONS (1)
  - RENAL IMPAIRMENT [None]
